FAERS Safety Report 17468880 (Version 1)
Quarter: 2020Q1

REPORT INFORMATION
  Report Type: Spontaneous
  Country: US (occurrence: US)
  Receive Date: 20200227
  Receipt Date: 20200227
  Transmission Date: 20200409
  Serious: No
  Sender: FDA-Public Use
  Company Number: US-AEGERION PHARMACEUTICAL, INC-AEGR004426

PATIENT
  Sex: Female
  Weight: 85.26 kg

DRUGS (3)
  1. TRULICITY [Concomitant]
     Active Substance: DULAGLUTIDE
     Indication: PRODUCT USED FOR UNKNOWN INDICATION
     Dosage: 0.75MG/0.5 PEN INJCTR
  2. REBIF [Concomitant]
     Active Substance: INTERFERON BETA-1A
     Indication: PRODUCT USED FOR UNKNOWN INDICATION
     Dosage: 22MCG/.5ML SYRINGE
  3. MYALEPT [Suspect]
     Active Substance: METRELEPTIN
     Indication: LIPODYSTROPHY ACQUIRED
     Dosage: 10 MG, QD
     Route: 058
     Dates: start: 201605

REACTIONS (5)
  - Injection site bruising [Unknown]
  - Pyrexia [Unknown]
  - Nausea [Unknown]
  - Pain [Unknown]
  - Influenza like illness [Unknown]
